FAERS Safety Report 10247413 (Version 1)
Quarter: 2014Q1

REPORT INFORMATION
  Report Type: Spontaneous
  Country: US (occurrence: None)
  Receive Date: 20140306
  Receipt Date: 20140306
  Transmission Date: 20141002
  Serious: Yes (Hospitalization)
  Sender: FDA-Public Use
  Company Number: 163-21880-13033151

PATIENT
  Age: 84 Year
  Sex: Female

DRUGS (9)
  1. REVLIMID [Suspect]
     Indication: PLASMA CELL MYELOMA
     Route: 048
     Dates: start: 20110725
  2. CLONIDINE HCL [Concomitant]
  3. DEXAMETHASONE [Concomitant]
  4. DILTIAZEM HCL (DILTIAZEM HYDROCHLORIDE) (UNKNOWN) [Concomitant]
  5. DIOVAN (VALSARTAN) (UNKNOWN) [Concomitant]
  6. FENOFIBRATE (UNKNOWN) [Concomitant]
  7. HEPARIN (UNKNOWN) [Concomitant]
  8. HUMULIN N (INSULIN HUMAN INJECTION, ISOPHANE) (UNKNOWN) [Concomitant]
  9. MAGNESIUM OXIDE (UNKNOWN) [Concomitant]

REACTIONS (2)
  - Vomiting [None]
  - Nausea [None]
